FAERS Safety Report 4673104-6 (Version None)
Quarter: 2005Q2

REPORT INFORMATION
  Report Type: 
  Country: None (occurrence: None)
  Receive Date: 20050525
  Receipt Date: 20050513
  Transmission Date: 20051028
  Serious: Yes (Other)
  Sender: FDA-Public Use
  Company Number: JP-BRISTOL-MYERS SQUIBB COMPANY-12969580

PATIENT
  Sex: Male

DRUGS (2)
  1. PARAPLATIN [Suspect]
     Indication: OESOPHAGEAL CARCINOMA
     Route: 042
     Dates: start: 20050303, end: 20050303
  2. VEPESID [Suspect]
     Indication: OESOPHAGEAL CARCINOMA
     Route: 042
     Dates: start: 20050303, end: 20050303

REACTIONS (1)
  - SUPRAVENTRICULAR TACHYCARDIA [None]
